FAERS Safety Report 6186377-8 (Version None)
Quarter: 2009Q2

REPORT INFORMATION
  Report Type: 
  Country: None (occurrence: None)
  Receive Date: 20090511
  Receipt Date: 20080508
  Transmission Date: 20091009
  Serious: No
  Sender: FDA-Public Use
  Company Number: A0727241A

PATIENT
  Age: 49 Year
  Sex: Male

DRUGS (3)
  1. INNOPRAN XL [Suspect]
     Dosage: 80MG PER DAY
     Route: 048
     Dates: start: 20080507
  2. VALIUM [Concomitant]
  3. LISINOPRIL [Concomitant]

REACTIONS (2)
  - MUSCLE TWITCHING [None]
  - SLUGGISHNESS [None]
